FAERS Safety Report 12584138 (Version 1)
Quarter: 2016Q3

REPORT INFORMATION
  Report Type: Spontaneous
  Country: US (occurrence: US)
  Receive Date: 20160722
  Receipt Date: 20160722
  Transmission Date: 20161109
  Serious: Yes (Other)
  Sender: FDA-Public Use
  Company Number: US-B.I. PHARMACEUTICALS,INC./RIDGEFIELD-2016-BI-47183BP

PATIENT
  Sex: Male

DRUGS (2)
  1. PRADAXA [Suspect]
     Active Substance: DABIGATRAN ETEXILATE MESYLATE
     Dosage: 150 MG
     Route: 048
     Dates: end: 20160715
  2. PRADAXA [Suspect]
     Active Substance: DABIGATRAN ETEXILATE MESYLATE
     Indication: ATRIAL FIBRILLATION
     Dosage: 300 MG
     Route: 048
     Dates: start: 2014, end: 201601

REACTIONS (6)
  - Gait disturbance [Not Recovered/Not Resolved]
  - Deafness [Not Recovered/Not Resolved]
  - Feeling hot [Not Recovered/Not Resolved]
  - Penile haemorrhage [Not Recovered/Not Resolved]
  - Dizziness [Not Recovered/Not Resolved]
  - Feeling cold [Not Recovered/Not Resolved]

NARRATIVE: CASE EVENT DATE: 2014
